FAERS Safety Report 18611706 (Version 1)
Quarter: 2020Q4

REPORT INFORMATION
  Report Type: Spontaneous
  Country: US (occurrence: US)
  Receive Date: 20201214
  Receipt Date: 20201214
  Transmission Date: 20210114
  Serious: No
  Sender: FDA-Public Use
  Company Number: US-R-PHARM US LLC-2020RPM00002

PATIENT

DRUGS (1)
  1. IXEMPRA [Suspect]
     Active Substance: IXABEPILONE
     Dosage: UNK

REACTIONS (1)
  - Myalgia [Not Recovered/Not Resolved]
